FAERS Safety Report 4389558-9 (Version None)
Quarter: 2004Q2

REPORT INFORMATION
  Report Type: 
  Country: None (occurrence: None)
  Receive Date: 20040629
  Receipt Date: 20040427
  Transmission Date: 20050107
  Serious: Yes (Other)
  Sender: FDA-Public Use
  Company Number: US-JNJFOC-20040401744

PATIENT
  Age: 71 Year
  Sex: Female

DRUGS (3)
  1. DURAGESIC [Suspect]
     Indication: PAIN
     Dosage: 75 UG/HR, 1 IN 72 HOUR, TRANSDERMAL
     Route: 062
     Dates: start: 20040318, end: 20040322
  2. OXYCONTIN [Suspect]
     Indication: PAIN
     Dosage: 40 MG, 1 IN 12 HOUR, ORAL
     Route: 048
     Dates: start: 20020101
  3. AMBIEN [Concomitant]

REACTIONS (5)
  - CONFUSIONAL STATE [None]
  - CONTUSION [None]
  - HEADACHE [None]
  - INJURY [None]
  - LOSS OF CONSCIOUSNESS [None]
